FAERS Safety Report 24777922 (Version 1)
Quarter: 2024Q4

REPORT INFORMATION
  Report Type: Spontaneous
  Country: AU (occurrence: None)
  Receive Date: 20241225
  Receipt Date: 20241225
  Transmission Date: 20250115
  Serious: Yes (Other)
  Sender: Public
  Company Number: None

PATIENT
  Age: 18 Year
  Sex: Female
  Weight: 55 kg

DRUGS (8)
  1. AMOXICILLIN\CLAVULANATE POTASSIUM [Suspect]
     Active Substance: AMOXICILLIN\CLAVULANATE POTASSIUM
     Indication: Kidney infection
     Dosage: 1 TABLET TWICE  DAY ORL
     Route: 048
  2. Sertralne [Concomitant]
  3. METOPROLOL [Concomitant]
     Active Substance: METOPROLOL
  4. AUGMENTIN [Concomitant]
     Active Substance: AMOXICILLIN\CLAVULANATE POTASSIUM
  5. IBUPROFEN [Concomitant]
     Active Substance: IBUPROFEN
  6. PANADOL [Concomitant]
     Active Substance: ACETAMINOPHEN
  7. Women^s Iron supplements [Concomitant]
  8. Vitamin C supplements [Concomitant]

REACTIONS (4)
  - Vulvovaginal pain [None]
  - Vulvovaginal swelling [None]
  - Vulvovaginal burning sensation [None]
  - Emotional distress [None]

NARRATIVE: CASE EVENT DATE: 20241219
